FAERS Safety Report 9350790 (Version 5)
Quarter: 2014Q2

REPORT INFORMATION
  Report Type: Report from Study
  Country: CA (occurrence: CA)
  Receive Date: 20130617
  Receipt Date: 20140403
  Transmission Date: 20141212
  Serious: Yes (Other)
  Sender: FDA-Public Use
  Company Number: PHHY2011CA04690

PATIENT
  Age: 32 Year
  Sex: Male

DRUGS (1)
  1. ZOMETA [Suspect]
     Indication: PLASMA CELL MYELOMA
     Dosage: 4 MG, EVERY 4 WEEKS
     Route: 042
     Dates: start: 20101221

REACTIONS (13)
  - Lower respiratory tract infection [Unknown]
  - Cough [Unknown]
  - Productive cough [Unknown]
  - Body temperature decreased [Unknown]
  - Movement disorder [Unknown]
  - Back pain [Unknown]
  - Pain [Unknown]
  - Heart rate decreased [Unknown]
  - Blood pressure increased [Unknown]
  - Pain in extremity [Unknown]
  - Bone pain [Unknown]
  - Anxiety [Unknown]
  - Blood pressure diastolic decreased [Unknown]
